FAERS Safety Report 24936244 (Version 1)
Quarter: 2025Q1

REPORT INFORMATION
  Report Type: Spontaneous
  Country: US (occurrence: None)
  Receive Date: 20250205
  Receipt Date: 20250205
  Transmission Date: 20250408
  Serious: Yes (Hospitalization)
  Sender: FDA-CTU
  Company Number: None

PATIENT
  Sex: Female

DRUGS (1)
  1. ARALAST NP [Suspect]
     Active Substance: .ALPHA.1-PROTEINASE INHIBITOR HUMAN
     Indication: Alpha-1 antitrypsin deficiency
     Dosage: FREQUENCY : WEEKLY;?
     Route: 042
     Dates: start: 202501

REACTIONS (2)
  - Hemiplegic migraine [None]
  - Therapy interrupted [None]

NARRATIVE: CASE EVENT DATE: 20241119
